FAERS Safety Report 24544116 (Version 1)
Quarter: 2024Q4

REPORT INFORMATION
  Report Type: Report from Study
  Country: CN (occurrence: CN)
  Receive Date: 20241024
  Receipt Date: 20241024
  Transmission Date: 20250114
  Serious: Yes (Other)
  Sender: MYLAN
  Company Number: CN-MYLANLABS-2024M1096379

PATIENT
  Age: 49 Year
  Sex: Male

DRUGS (3)
  1. PREGABALIN [Suspect]
     Active Substance: PREGABALIN
     Indication: Post herpetic neuralgia
     Dosage: 300 MILLIGRAM, QD
     Route: 065
  2. PREGABALIN [Suspect]
     Active Substance: PREGABALIN
     Dosage: UNK (DOSE REDUCED)
     Route: 065
  3. FENTANYL [Suspect]
     Active Substance: FENTANYL
     Indication: Post herpetic neuralgia
     Dosage: 50 MICROGRAM, QH
     Route: 062

REACTIONS (1)
  - Drug ineffective [Unknown]
